FAERS Safety Report 12220173 (Version 1)
Quarter: 2016Q1

REPORT INFORMATION
  Report Type: Spontaneous
  Country: US (occurrence: US)
  Receive Date: 20160330
  Receipt Date: 20160330
  Transmission Date: 20160526
  Serious: No
  Sender: FDA-Public Use
  Company Number: PHEH2016US007329

PATIENT
  Sex: Female

DRUGS (1)
  1. TRILEPTAL [Suspect]
     Active Substance: OXCARBAZEPINE
     Indication: SEIZURE
     Dosage: 600 MG, TID, FOR 10 YEARS
     Route: 048

REACTIONS (5)
  - Anxiety [Unknown]
  - Depressed mood [Unknown]
  - Fear [Unknown]
  - Liver injury [Unknown]
  - Bipolar disorder [Unknown]
